FAERS Safety Report 15330059 (Version 1)
Quarter: 2018Q3

REPORT INFORMATION
  Report Type: Spontaneous
  Country: US (occurrence: US)
  Receive Date: 20180824
  Receipt Date: 20180824
  Transmission Date: 20181010
  Serious: Yes (Other)
  Sender: FDA-Public Use
  Company Number: None

PATIENT
  Age: 63 Year
  Sex: Male
  Weight: 71.55 kg

DRUGS (5)
  1. HARVONI [Suspect]
     Active Substance: LEDIPASVIR\SOFOSBUVIR
  2. GENVOYA ORAL TAB [Concomitant]
  3. HCTZ 12.5/LISINOPRIL 10MG TAB [Concomitant]
  4. SILDENAFIL CITRATE 100MG TAB [Concomitant]
     Active Substance: SILDENAFIL CITRATE
  5. DARUNAVIR ETHANOLATE 800MG [Concomitant]

REACTIONS (1)
  - Haemangioma of liver [None]

NARRATIVE: CASE EVENT DATE: 20180807
